FAERS Safety Report 25621180 (Version 3)
Quarter: 2025Q3

REPORT INFORMATION
  Report Type: Report from Study
  Country: US (occurrence: US)
  Receive Date: 20250730
  Receipt Date: 20250902
  Transmission Date: 20251020
  Serious: No
  Sender: ACADIA PHARMACEUTICALS
  Company Number: US-ACADIA PHARMACEUTICALS INC.-ACA-2025-PIM-008710

PATIENT
  Age: 76 Year
  Sex: Male

DRUGS (6)
  1. NUPLAZID [Suspect]
     Active Substance: PIMAVANSERIN TARTRATE
     Indication: Parkinson^s disease psychosis
     Dosage: 34 MILLIGRAM, QD
     Route: 048
     Dates: start: 202507, end: 202507
  2. LACTATE DE SODIUM [SODIUM CHLORIDE;SODIUM LACTATE] [Concomitant]
  3. RIVASTIGMINE [Concomitant]
     Active Substance: RIVASTIGMINE
  4. CARVEDILOL [Concomitant]
     Active Substance: CARVEDILOL
  5. DEPAKOTE ER [Concomitant]
     Active Substance: DIVALPROEX SODIUM
  6. LORAZEPAM [Concomitant]
     Active Substance: LORAZEPAM

REACTIONS (1)
  - Somnolence [Unknown]

NARRATIVE: CASE EVENT DATE: 20250714
